FAERS Safety Report 7531774-9 (Version None)
Quarter: 2011Q2

REPORT INFORMATION
  Report Type: 
  Country: None (occurrence: None)
  Receive Date: 20110601
  Receipt Date: 20110524
  Transmission Date: 20111010
  Serious: Yes (Life-Threatening)
  Sender: FDA-Public Use
  Company Number: GER/GER/11/0018474

PATIENT
  Age: 80 Year
  Sex: Female

DRUGS (14)
  1. ALENDRONATE SODIUM [Suspect]
     Indication: PRODUCT USED FOR UNKNOWN INDICATION
     Dosage: 70 MG, 1 IN 1 WK
     Dates: start: 20101001
  2. RAMIPRIL [Concomitant]
  3. FUROSMIDE (FUROSEMIDE) [Concomitant]
  4. OPIPRAMOL (OPIPTRAMOL) [Concomitant]
  5. DEKRISTOL (COLECALCIFEROL) [Concomitant]
  6. L-THYROX 100 (LEVOTHYROXINE SODIUM) [Concomitant]
  7. VALPROAT CHRONO (VALPROATE SODIUM) [Concomitant]
  8. VOTUM PLUS (BENICAR HCT) [Concomitant]
  9. AMLODIPINE [Concomitant]
  10. ISOSORBIDE DINITRATE [Concomitant]
  11. BROMAZEPAM (BROMAZEPAM) [Concomitant]
  12. MARCUMAR [Suspect]
     Indication: ATRIAL FIBRILLATION
     Dates: start: 20080401
  13. BISOPROLOL FUMARATE [Concomitant]
  14. DOXEPIN HCL [Concomitant]

REACTIONS (2)
  - DRUG EFFECT INCREASED [None]
  - DRUG INTERACTION [None]
